FAERS Safety Report 4660944-2 (Version None)
Quarter: 2005Q2

REPORT INFORMATION
  Report Type: 
  Country: None (occurrence: None)
  Receive Date: 20050511
  Receipt Date: 20050504
  Transmission Date: 20051028
  Serious: Yes (Other)
  Sender: FDA-Public Use
  Company Number: 2005070451

PATIENT
  Age: 46 Year
  Sex: Female
  Weight: 85.2762 kg

DRUGS (8)
  1. NEURONTIN [Suspect]
     Indication: DIABETIC NEUROPATHY
     Dosage: 1800 MG (600 MG, 1 IN 3D), ORAL
     Route: 048
     Dates: start: 20030101
  2. CHLORPROPAMIDE [Suspect]
     Indication: DIABETES MELLITUS
     Dosage: 2.5 MG (2.5 MG, 1 IN 1 D), ORAL
     Route: 048
     Dates: start: 20040101
  3. TOLTERODINE (TOLTERODINE L-TARTRATE) (TOLTERODINE) [Suspect]
     Indication: HYPERTONIC BLADDER
     Dosage: 4 MG (4 MG, 1 IN 1 D), ORAL
     Route: 048
     Dates: start: 20040101
  4. AMITRIPTYLINE HYDROCHLORIDE [Suspect]
     Indication: DIABETIC NEUROPATHY
     Dosage: 100 MG 9100 MG , 1 IN 1 D), ORAL
     Route: 048
     Dates: start: 20030101
  5. KARVEA HCT (HYDROCHLOROTHIAZIDE, IRBESARTAN) [Suspect]
     Indication: ILL-DEFINED DISORDER
  6. METFORMIN HCL [Concomitant]
  7. ROSUVASTATIN (ROSUVASTATIN) [Concomitant]
  8. ATORVASTATIN CALCIUM [Concomitant]

REACTIONS (6)
  - ECONOMIC PROBLEM [None]
  - HYPERTONIC BLADDER [None]
  - HYPOAESTHESIA ORAL [None]
  - HYSTERECTOMY [None]
  - POST PROCEDURAL COMPLICATION [None]
  - TREATMENT NONCOMPLIANCE [None]
